FAERS Safety Report 7956482-1 (Version None)
Quarter: 2011Q4

REPORT INFORMATION
  Report Type: 
  Country: None (occurrence: None)
  Receive Date: 20111205
  Receipt Date: 20111125
  Transmission Date: 20120403
  Serious: Yes (Other)
  Sender: FDA-Public Use
  Company Number: US-BAYER-201033132NA

PATIENT
  Age: 23 Year
  Sex: Female
  Weight: 72.109 kg

DRUGS (4)
  1. YAZ [Suspect]
     Dosage: UNK
     Dates: start: 20090913, end: 20091010
  2. YAZ [Suspect]
     Indication: MENSTRUATION IRREGULAR
     Dosage: UNK
     Dates: start: 20090301, end: 20090901
  3. UNCODEABLE ^UNCLASSIFIABLE^ [Concomitant]
     Dosage: UNK
     Dates: start: 20090915, end: 20091101
  4. YAZ [Suspect]
     Indication: CONTRACEPTION
     Dosage: UNK
     Dates: start: 20070501, end: 20070901

REACTIONS (9)
  - CHOLECYSTITIS CHRONIC [None]
  - ANXIETY [None]
  - CONSTIPATION [None]
  - DEPRESSION [None]
  - ABDOMINAL DISTENSION [None]
  - DYSPEPSIA [None]
  - DIARRHOEA [None]
  - CHOLECYSTECTOMY [None]
  - SCAR [None]
